FAERS Safety Report 7488320-8 (Version None)
Quarter: 2011Q2

REPORT INFORMATION
  Report Type: 
  Country: None (occurrence: None)
  Receive Date: 20110518
  Receipt Date: 20110512
  Transmission Date: 20111010
  Serious: Yes (Other)
  Sender: FDA-Public Use
  Company Number: GB-SHIRE-PNT1-2010-00013

PATIENT
  Sex: Male
  Weight: 83.4 kg

DRUGS (2)
  1. MESALAMINE [Suspect]
     Indication: DIVERTICULITIS
     Dosage: 2.4 G, 1X/DAY:QD
     Route: 048
     Dates: start: 20090907, end: 20100510
  2. PLACEBO [Suspect]
     Indication: DIVERTICULITIS
     Dosage: 2.4 G, 1X/DAY:QD
     Route: 048
     Dates: start: 20090907, end: 20100510

REACTIONS (1)
  - CHILLS [None]
